FAERS Safety Report 7867287-4 (Version None)
Quarter: 2011Q4

REPORT INFORMATION
  Report Type: 
  Country: None (occurrence: None)
  Receive Date: 20111028
  Receipt Date: 20111017
  Transmission Date: 20120403
  Serious: Yes (Hospitalization)
  Sender: FDA-Public Use
  Company Number: PHHO2011US17211

PATIENT
  Sex: Female
  Weight: 66.213 kg

DRUGS (8)
  1. SEROQUEL [Suspect]
  2. CITALOPRAM HYDROBROMIDE [Concomitant]
     Indication: DEPRESSION
     Dosage: 20 MG, QHS
     Route: 048
     Dates: start: 20110714, end: 20110922
  3. DEPAKOTE [Suspect]
     Indication: ANXIETY
     Dosage: 250 MG, QHS
     Dates: start: 20080101
  4. NAMENDA [Concomitant]
     Indication: DEMENTIA ALZHEIMER'S TYPE
     Dosage: 20 MG, QHS
     Route: 048
     Dates: start: 20080101
  5. CEREFOLIN [Concomitant]
     Indication: DEMENTIA ALZHEIMER'S TYPE
     Dosage: UNK
     Route: 048
     Dates: start: 20100804
  6. DEPAKOTE [Suspect]
     Indication: AGITATION
     Dosage: 125 MG, QAM
     Route: 048
     Dates: start: 20110908
  7. EXELON [Suspect]
     Indication: DEMENTIA ALZHEIMER'S TYPE
     Dosage: 27 MG, Q24H
     Route: 062
     Dates: start: 20110426
  8. ATIVAN [Suspect]

REACTIONS (2)
  - DISEASE PROGRESSION [None]
  - SUBDURAL HAEMATOMA [None]
